FAERS Safety Report 9781087 (Version 1)
Quarter: 2013Q4

REPORT INFORMATION
  Report Type: Spontaneous
  Country: US (occurrence: None)
  Receive Date: 20131223
  Receipt Date: 20131223
  Transmission Date: 20140711
  Serious: Yes (Disabling)
  Sender: FDA-Public Use
  Company Number: None

PATIENT
  Age: 28 Year
  Sex: Female
  Weight: 80.74 kg

DRUGS (2)
  1. WELLBUTRIN SR [Suspect]
     Indication: DEPRESSION
     Route: 048
     Dates: start: 20131021, end: 20131209
  2. WELLBUTRIN SR [Suspect]
     Indication: ANXIETY
     Route: 048
     Dates: start: 20131021, end: 20131209

REACTIONS (4)
  - Depression [None]
  - Cough [None]
  - Mania [None]
  - Affective disorder [None]
